FAERS Safety Report 6216596-3 (Version None)
Quarter: 2009Q2

REPORT INFORMATION
  Report Type: 
  Country: None (occurrence: None)
  Receive Date: 20090605
  Receipt Date: 20090527
  Transmission Date: 20091009
  Serious: Yes (Other)
  Sender: FDA-Public Use
  Company Number: PHHY2009JP15349

PATIENT
  Sex: Male
  Weight: 67 kg

DRUGS (3)
  1. DIOVAN [Suspect]
     Indication: HYPERTENSION
     Dosage: 40 MG, QD
     Route: 048
     Dates: start: 20071207
  2. WARFARIN SODIUM [Concomitant]
     Dosage: 4 MG
     Route: 048
     Dates: start: 20030514
  3. WARFARIN SODIUM [Concomitant]
     Dosage: 3.5 MG
     Route: 048

REACTIONS (2)
  - BLOOD GLUCOSE INCREASED [None]
  - GLUCOSE URINE PRESENT [None]
